FAERS Safety Report 22787655 (Version 8)
Quarter: 2023Q4

REPORT INFORMATION
  Report Type: Report from Study
  Country: US (occurrence: US)
  Receive Date: 20230804
  Receipt Date: 20231222
  Transmission Date: 20240110
  Serious: Yes (Hospitalization, Other)
  Sender: FDA-Public Use
  Company Number: US-INSMED, INC.-2023-02711-US

PATIENT
  Sex: Female

DRUGS (43)
  1. ARIKAYCE [Suspect]
     Active Substance: AMIKACIN
     Indication: Mycobacterium avium complex infection
     Dosage: 590 MILLIGRAM, QD
     Route: 055
     Dates: start: 20230710, end: 2023
  2. ATROVENT [Suspect]
     Active Substance: IPRATROPIUM BROMIDE
     Indication: Product used for unknown indication
     Dosage: UNK
     Route: 055
     Dates: start: 20230710, end: 20230712
  3. ALBUTEROL [Concomitant]
     Active Substance: ALBUTEROL
     Indication: Product used for unknown indication
     Dosage: UNK
     Route: 055
     Dates: start: 20230710
  4. ZITHROMAX [Concomitant]
     Active Substance: AZITHROMYCIN DIHYDRATE
     Indication: Pneumonitis
     Dosage: 250 MILLIGRAM, 1X DAILY FOR FIRST WEEK OF EVERY MONTH
     Route: 055
  5. ZITHROMAX [Concomitant]
     Active Substance: AZITHROMYCIN DIHYDRATE
     Indication: Asthma
  6. ZITHROMAX [Concomitant]
     Active Substance: AZITHROMYCIN DIHYDRATE
     Indication: Bronchiectasis
  7. ZITHROMAX [Concomitant]
     Active Substance: AZITHROMYCIN DIHYDRATE
     Indication: Chronic obstructive pulmonary disease
  8. ZITHROMAX [Concomitant]
     Active Substance: AZITHROMYCIN DIHYDRATE
     Indication: Pulmonary congestion
  9. LEVALBUTEROL HYDROCHLORIDE [Concomitant]
     Active Substance: LEVALBUTEROL HYDROCHLORIDE
     Indication: Pneumonitis
     Dosage: 1.25MG/3ML, UP TO FOUR TIMES DAILY
     Route: 055
  10. LEVALBUTEROL HYDROCHLORIDE [Concomitant]
     Active Substance: LEVALBUTEROL HYDROCHLORIDE
     Indication: Asthma
  11. LEVALBUTEROL HYDROCHLORIDE [Concomitant]
     Active Substance: LEVALBUTEROL HYDROCHLORIDE
     Indication: Bronchiectasis
  12. LEVALBUTEROL HYDROCHLORIDE [Concomitant]
     Active Substance: LEVALBUTEROL HYDROCHLORIDE
     Indication: Chronic obstructive pulmonary disease
  13. LEVALBUTEROL HYDROCHLORIDE [Concomitant]
     Active Substance: LEVALBUTEROL HYDROCHLORIDE
     Indication: Pulmonary congestion
  14. LEVALBUTEROL [Concomitant]
     Active Substance: LEVALBUTEROL
     Indication: Pneumonitis
     Dosage: 2 PUFFS, UP TO FOUR TIMES DAILY
     Route: 055
  15. LEVALBUTEROL [Concomitant]
     Active Substance: LEVALBUTEROL
     Indication: Asthma
  16. LEVALBUTEROL [Concomitant]
     Active Substance: LEVALBUTEROL
     Indication: Bronchiectasis
  17. LEVALBUTEROL [Concomitant]
     Active Substance: LEVALBUTEROL
     Indication: Chronic obstructive pulmonary disease
  18. LEVALBUTEROL [Concomitant]
     Active Substance: LEVALBUTEROL
     Indication: Pulmonary congestion
  19. PREDNISONE [Concomitant]
     Active Substance: PREDNISONE
     Indication: Pneumonitis
     Dosage: 10 MILLIGRAM, QD
     Route: 065
  20. PREDNISONE [Concomitant]
     Active Substance: PREDNISONE
     Indication: Asthma
  21. PREDNISONE [Concomitant]
     Active Substance: PREDNISONE
     Indication: Bronchiectasis
  22. PREDNISONE [Concomitant]
     Active Substance: PREDNISONE
     Indication: Chronic obstructive pulmonary disease
  23. PREDNISONE [Concomitant]
     Active Substance: PREDNISONE
     Indication: Pulmonary congestion
  24. TRELEGY ELLIPTA [Concomitant]
     Active Substance: FLUTICASONE FUROATE\UMECLIDINIUM BROMIDE\VILANTEROL TRIFENATATE
     Indication: Pneumonitis
     Dosage: 1 DOSAGE FORM, QD
     Route: 055
  25. TRELEGY ELLIPTA [Concomitant]
     Active Substance: FLUTICASONE FUROATE\UMECLIDINIUM BROMIDE\VILANTEROL TRIFENATATE
     Indication: Asthma
  26. TRELEGY ELLIPTA [Concomitant]
     Active Substance: FLUTICASONE FUROATE\UMECLIDINIUM BROMIDE\VILANTEROL TRIFENATATE
     Indication: Bronchiectasis
  27. TRELEGY ELLIPTA [Concomitant]
     Active Substance: FLUTICASONE FUROATE\UMECLIDINIUM BROMIDE\VILANTEROL TRIFENATATE
     Indication: Chronic obstructive pulmonary disease
  28. TRELEGY ELLIPTA [Concomitant]
     Active Substance: FLUTICASONE FUROATE\UMECLIDINIUM BROMIDE\VILANTEROL TRIFENATATE
     Indication: Pulmonary congestion
  29. MUCOMYST [Concomitant]
     Active Substance: ACETYLCYSTEINE
     Indication: Pneumonitis
     Dosage: UP TO 4 MILLILITER, UP TO 2X DAILY AS NEEDED
     Route: 055
  30. MUCOMYST [Concomitant]
     Active Substance: ACETYLCYSTEINE
     Indication: Asthma
  31. MUCOMYST [Concomitant]
     Active Substance: ACETYLCYSTEINE
     Indication: Bronchiectasis
  32. MUCOMYST [Concomitant]
     Active Substance: ACETYLCYSTEINE
     Indication: Chronic obstructive pulmonary disease
  33. MUCOMYST [Concomitant]
     Active Substance: ACETYLCYSTEINE
     Indication: Pulmonary congestion
  34. MUCINEX [Concomitant]
     Active Substance: GUAIFENESIN
     Indication: Pneumonitis
     Dosage: 400 MILLIGRAM, UP TP 2X DAILY AS NEEDED
     Route: 048
  35. MUCINEX [Concomitant]
     Active Substance: GUAIFENESIN
     Indication: Asthma
  36. MUCINEX [Concomitant]
     Active Substance: GUAIFENESIN
     Indication: Bronchiectasis
  37. MUCINEX [Concomitant]
     Active Substance: GUAIFENESIN
     Indication: Chronic obstructive pulmonary disease
  38. MUCINEX [Concomitant]
     Active Substance: GUAIFENESIN
     Indication: Pulmonary congestion
  39. SODIUM CHLORIDE [Concomitant]
     Active Substance: SODIUM CHLORIDE
     Indication: Pneumonitis
     Dosage: UNK, UP TO 2 TIMES DAILY AS NEEDED
     Route: 055
  40. SODIUM CHLORIDE [Concomitant]
     Active Substance: SODIUM CHLORIDE
     Indication: Asthma
  41. SODIUM CHLORIDE [Concomitant]
     Active Substance: SODIUM CHLORIDE
     Indication: Bronchiectasis
  42. SODIUM CHLORIDE [Concomitant]
     Active Substance: SODIUM CHLORIDE
     Indication: Chronic obstructive pulmonary disease
  43. SODIUM CHLORIDE [Concomitant]
     Active Substance: SODIUM CHLORIDE
     Indication: Pulmonary congestion

REACTIONS (13)
  - Hospitalisation [Unknown]
  - Asthma [Unknown]
  - Chronic obstructive pulmonary disease [Unknown]
  - Fungal skin infection [Recovered/Resolved]
  - Laryngitis [Recovering/Resolving]
  - Dysphonia [Not Recovered/Not Resolved]
  - Cough [Not Recovered/Not Resolved]
  - Adverse drug reaction [Not Recovered/Not Resolved]
  - Dyspnoea [Not Recovered/Not Resolved]
  - Wrong technique in product usage process [Unknown]
  - Device issue [Unknown]
  - Accidental underdose [Unknown]
  - Therapy interrupted [Unknown]

NARRATIVE: CASE EVENT DATE: 20230101
